FAERS Safety Report 18505438 (Version 1)
Quarter: 2020Q4

REPORT INFORMATION
  Report Type: Other
  Country: US (occurrence: US)
  Receive Date: 20201116
  Receipt Date: 20201116
  Transmission Date: 20210114
  Serious: Yes (Hospitalization)
  Sender: FDA-Public Use
  Company Number: US-CHEMI SPA-2095937

PATIENT

DRUGS (7)
  1. ETOPOSIDE. [Suspect]
     Active Substance: ETOPOSIDE
  2. VINCRISTINE [Suspect]
     Active Substance: VINCRISTINE
     Route: 042
  3. DOXORUBICINE [Suspect]
     Active Substance: DOXORUBICIN
     Route: 042
  4. IFOSFAMIDE. [Suspect]
     Active Substance: IFOSFAMIDE
     Route: 042
  5. TEMOZOLOMIDE. [Suspect]
     Active Substance: TEMOZOLOMIDE
     Indication: DESMOPLASTIC SMALL ROUND CELL TUMOUR
     Route: 048
  6. IRINOTECAN HYDROCHLORIDE. [Suspect]
     Active Substance: IRINOTECAN HYDROCHLORIDE
     Route: 042
  7. CYCLOPHOSPHAMIDE. [Suspect]
     Active Substance: CYCLOPHOSPHAMIDE
     Route: 042

REACTIONS (7)
  - Vomiting [Unknown]
  - Constipation [Unknown]
  - Clostridium difficile infection [Unknown]
  - Nausea [Unknown]
  - Venoocclusive liver disease [Unknown]
  - Diarrhoea [Unknown]
  - Myelosuppression [Unknown]
